FAERS Safety Report 5957151-X (Version None)
Quarter: 2008Q4

REPORT INFORMATION
  Report Type: 
  Country: None (occurrence: None)
  Receive Date: 20081117
  Receipt Date: 20081117
  Transmission Date: 20090506
  Serious: No
  Sender: FDA-Public Use
  Company Number: None

PATIENT
  Age: 38 Year
  Sex: Female
  Weight: 68.9467 kg

DRUGS (1)
  1. CLINDESSE [Suspect]
     Indication: BACTERIAL INFECTION
     Dosage: ONE DAY VAGINAL DOSE JUST THAT ONE DAY VAG
     Route: 067

REACTIONS (7)
  - CHEST DISCOMFORT [None]
  - CHILLS [None]
  - CONTUSION [None]
  - DYSPNOEA [None]
  - HEART RATE INCREASED [None]
  - PRURITUS GENITAL [None]
  - VAGINAL DISCHARGE [None]
